FAERS Safety Report 4300797-5 (Version None)
Quarter: 2004Q1

REPORT INFORMATION
  Report Type: 
  Country: None (occurrence: None)
  Receive Date: 20040218
  Receipt Date: 20040204
  Transmission Date: 20041129
  Serious: No
  Sender: FDA-Public Use
  Company Number: 2004-BP-00643YA

PATIENT
  Age: 66 Year
  Sex: Male

DRUGS (4)
  1. HARNAL (TAMSULOSIN) (NR) (TAMSULOSIN HYDROCHLORIDE) [Suspect]
     Indication: BENIGN PROSTATIC HYPERPLASIA
     Dosage: SEE IMAGE
     Route: 048
     Dates: start: 20031217, end: 20031219
  2. HARNAL (TAMSULOSIN) (NR) (TAMSULOSIN HYDROCHLORIDE) [Suspect]
     Indication: BENIGN PROSTATIC HYPERPLASIA
     Dosage: SEE IMAGE
     Route: 048
     Dates: start: 20031220, end: 20040120
  3. HARNAL (TAMSULOSIN) (NR) (TAMSULOSIN HYDROCHLORIDE) [Suspect]
     Indication: BENIGN PROSTATIC HYPERPLASIA
     Dosage: SEE IMAGE
     Route: 048
     Dates: start: 20040101
  4. NICARDIPINE HYDROCHLORIDE (NICARDIPINE HYDROCHLORIDE) (NR) [Concomitant]

REACTIONS (10)
  - DISTURBANCE IN ATTENTION [None]
  - FALL [None]
  - FATIGUE [None]
  - HEADACHE [None]
  - LISTLESS [None]
  - LOSS OF CONSCIOUSNESS [None]
  - MOUTH INJURY [None]
  - ORTHOSTATIC HYPOTENSION [None]
  - VISUAL DISTURBANCE [None]
  - WOUND [None]
